FAERS Safety Report 5069450-7 (Version None)
Quarter: 2006Q3

REPORT INFORMATION
  Report Type: 
  Country: None (occurrence: None)
  Receive Date: 20060731
  Receipt Date: 20060717
  Transmission Date: 20061208
  Serious: Yes (Other)
  Sender: FDA-Public Use
  Company Number: 200612996BCC

PATIENT
  Age: 70 Year
  Sex: Female
  Weight: 63.5036 kg

DRUGS (13)
  1. GENUINE BAYER ASPIRIN (ACETYLSALICYLIC ACID) [Suspect]
     Indication: ISCHAEMIC HEART DISEASE PROPHYLAXIS
     Dosage: 325-650 MG ORAL
     Route: 048
     Dates: start: 19960101, end: 20060101
  2. LOW DOSE BAYER ASPIRIN (ACETYLSALICYLIC ACID) [Suspect]
     Dosage: 81 MG HS ORAL
     Route: 048
     Dates: start: 20050701
  3. ORIGINAL ALKA-SELTZER [Suspect]
     Indication: STOMACH DISCOMFORT
     Dosage: 650 MG IRR ORAL
     Route: 048
     Dates: start: 19860101
  4. LIPITOR [Concomitant]
  5. FEOSOL [Concomitant]
  6. ENALAPRIL MALEATE [Concomitant]
  7. ACTOS [Concomitant]
  8. METFORMIN [Concomitant]
  9. GLIPIZIDE [Concomitant]
  10. VITAMINS NOS [Concomitant]
  11. POTASSIUM [Concomitant]
  12. FOLIC ACID [Concomitant]
  13. ALEVE [Concomitant]

REACTIONS (1)
  - VASODILATATION [None]
